FAERS Safety Report 5711089-1 (Version None)
Quarter: 2008Q2

REPORT INFORMATION
  Report Type: 
  Country: None (occurrence: None)
  Receive Date: 20080421
  Receipt Date: 20080408
  Transmission Date: 20081010
  Serious: Yes (Other)
  Sender: FDA-Public Use
  Company Number: ES-AMGEN-UK274090

PATIENT
  Age: 28 Year
  Sex: Female

DRUGS (5)
  1. ARANESP [Suspect]
     Indication: RENAL FAILURE CHRONIC
     Route: 058
     Dates: start: 20070101
  2. ARANESP [Suspect]
     Route: 058
  3. ARANESP [Suspect]
     Route: 058
     Dates: end: 20080301
  4. ARANESP [Suspect]
     Route: 058
     Dates: start: 20080301
  5. CORTICOSTEROIDS [Concomitant]
     Route: 065

REACTIONS (3)
  - APLASIA PURE RED CELL [None]
  - MYELODYSPLASTIC SYNDROME [None]
  - SYSTEMIC LUPUS ERYTHEMATOSUS [None]
